FAERS Safety Report 9960937 (Version 1)
Quarter: 2014Q1

REPORT INFORMATION
  Report Type: Report from Study
  Country: US (occurrence: US)
  Receive Date: 20140305
  Receipt Date: 20140305
  Transmission Date: 20141002
  Serious: No
  Sender: FDA-Public Use
  Company Number: US-ABBVIE-13P-163-1109768-00

PATIENT
  Age: 53 Year
  Sex: Female

DRUGS (8)
  1. HUMIRA [Suspect]
     Indication: CROHN^S DISEASE
     Dates: start: 201204
  2. AZATHIOPRINE [Concomitant]
     Indication: CROHN^S DISEASE
  3. LANTUS [Concomitant]
     Indication: DIABETES MELLITUS
     Dosage: EVERY MORNING
     Route: 058
  4. HUMALOG [Concomitant]
     Indication: DIABETES MELLITUS
     Dosage: THREE TIMES DAILY
     Route: 058
  5. ADVAIR [Concomitant]
     Indication: BRONCHIAL DISORDER
  6. OPANA [Concomitant]
     Indication: PAIN
     Dosage: 30 1 TAB THREE TIMES DAILY
  7. OXYCODONE [Concomitant]
     Indication: PAIN
     Dosage: AS NEEDED
  8. PHENERGAN [Concomitant]
     Indication: NAUSEA

REACTIONS (2)
  - Local swelling [Not Recovered/Not Resolved]
  - Rash [Not Recovered/Not Resolved]
